FAERS Safety Report 8512530-1 (Version None)
Quarter: 2012Q3

REPORT INFORMATION
  Report Type: 
  Country: None (occurrence: None)
  Receive Date: 20120716
  Receipt Date: 20120711
  Transmission Date: 20120928
  Serious: Yes (Disabling)
  Sender: FDA-Public Use
  Company Number: JP-GLAXOSMITHKLINE-B0814530A

PATIENT
  Sex: Male

DRUGS (7)
  1. PROMACTA [Suspect]
     Dosage: 50MG PER DAY
     Route: 048
     Dates: start: 20120123
  2. URSO 250 [Concomitant]
     Dosage: 600MG PER DAY
     Route: 048
  3. FUROSEMIDE [Concomitant]
     Dosage: 20MG PER DAY
     Route: 048
     Dates: start: 20120206
  4. ALLOPURINOL [Concomitant]
     Dosage: 200MG PER DAY
     Route: 048
  5. PROMACTA [Suspect]
     Dosage: 37.5MG PER DAY
     Route: 048
     Dates: start: 20111205, end: 20120122
  6. PROMACTA [Suspect]
     Indication: IDIOPATHIC THROMBOCYTOPENIC PURPURA
     Dosage: 12.5MG PER DAY
     Route: 048
     Dates: start: 20111017, end: 20111027
  7. PROMACTA [Suspect]
     Dosage: 25MG PER DAY
     Route: 048
     Dates: start: 20111028, end: 20111204

REACTIONS (1)
  - HAEMOGLOBIN DECREASED [None]
